FAERS Safety Report 13182898 (Version 1)
Quarter: 2017Q1

REPORT INFORMATION
  Report Type: Report from Study
  Country: US (occurrence: US)
  Receive Date: 20170203
  Receipt Date: 20170203
  Transmission Date: 20170428
  Serious: Yes (Hospitalization)
  Sender: FDA-Public Use
  Company Number: US-PFIZER INC-2017038797

PATIENT
  Age: 60 Year
  Sex: Female

DRUGS (1)
  1. IBRANCE [Suspect]
     Active Substance: PALBOCICLIB
     Indication: BREAST CANCER
     Dosage: 125 MG, CYCLIC, (DAILY FOR DAY 1- DAY 21 FOLLOWED BY 7 DAYS OF EVERY 28 DAYS)
     Route: 048
     Dates: start: 20160401

REACTIONS (3)
  - Deep vein thrombosis [Unknown]
  - Diarrhoea [Unknown]
  - White blood cell count decreased [Unknown]
